FAERS Safety Report 7355576-1 (Version None)
Quarter: 2011Q1

REPORT INFORMATION
  Report Type: 
  Country: None (occurrence: None)
  Receive Date: 20110316
  Receipt Date: 20110308
  Transmission Date: 20110831
  Serious: Yes (Other)
  Sender: FDA-Public Use
  Company Number: B0695486A

PATIENT
  Age: 10 Year
  Sex: Male
  Weight: 27 kg

DRUGS (4)
  1. MUCOTRON [Concomitant]
     Dosage: 2IUAX PER DAY
     Route: 048
     Dates: start: 20110107, end: 20110111
  2. TRANEXAMIC ACID [Concomitant]
     Dosage: 2IUAX PER DAY
     Route: 048
     Dates: start: 20110107, end: 20110111
  3. RELENZA [Suspect]
     Indication: INFLUENZA
     Route: 055
     Dates: start: 20110107, end: 20110108
  4. HUSTAZOL [Concomitant]
     Dosage: 2IUAX PER DAY
     Route: 048
     Dates: start: 20110107, end: 20110111

REACTIONS (2)
  - ABNORMAL BEHAVIOUR [None]
  - DEPRESSED LEVEL OF CONSCIOUSNESS [None]
